FAERS Safety Report 9651954 (Version 1)
Quarter: 2013Q4

REPORT INFORMATION
  Report Type: Spontaneous
  Country: US (occurrence: US)
  Receive Date: 20131029
  Receipt Date: 20131029
  Transmission Date: 20140711
  Serious: No
  Sender: FDA-Public Use
  Company Number: US-ENDO PHARMACEUTICALS INC.-AMAN20120001

PATIENT
  Age: 56 Year
  Sex: Female
  Weight: 58.57 kg

DRUGS (9)
  1. AMANTADINE HYDROCHLORIDE SYRUP 50MG/5ML [Suspect]
     Indication: PRODUCT USED FOR UNKNOWN INDICATION
     Dosage: UNKNOWN
     Route: 048
     Dates: start: 201108, end: 201109
  2. AMPYRA [Suspect]
     Indication: GAIT DISTURBANCE
     Route: 048
     Dates: start: 201108, end: 201109
  3. OXCARBAZEPINE [Suspect]
     Indication: PRODUCT USED FOR UNKNOWN INDICATION
     Dosage: UNKNOWN
     Route: 048
     Dates: start: 201108, end: 201109
  4. LYRICA [Concomitant]
     Dates: start: 2010
  5. AMITRIPTYLINE [Concomitant]
     Dates: start: 1987
  6. ARMOUR THYROID [Concomitant]
     Dates: start: 1992
  7. TOPAMAX [Concomitant]
     Dates: start: 2002
  8. POLYETHYLENE GLYCOL [Concomitant]
     Dates: start: 2005
  9. REBIF [Concomitant]
     Dates: start: 2010

REACTIONS (4)
  - Disturbance in attention [Recovered/Resolved]
  - Impaired driving ability [Recovered/Resolved]
  - Mental impairment [Recovered/Resolved]
  - Multiple sclerosis relapse [Recovered/Resolved]
